FAERS Safety Report 6911752-0 (Version None)
Quarter: 2010Q3

REPORT INFORMATION
  Report Type: 
  Country: None (occurrence: None)
  Receive Date: 20100806
  Receipt Date: 20100727
  Transmission Date: 20110219
  Serious: Yes (Hospitalization)
  Sender: FDA-Public Use
  Company Number: DE-ABBOTT-10P-062-0619105-00

PATIENT
  Sex: Male
  Weight: 98 kg

DRUGS (3)
  1. HUMIRA [Suspect]
     Indication: RHEUMATOID ARTHRITIS
     Dates: start: 20091001
  2. MTX [Concomitant]
     Indication: RHEUMATOID ARTHRITIS
     Dates: start: 20091001, end: 20100111
  3. MTX [Concomitant]
     Dates: start: 20100111

REACTIONS (2)
  - LOCALISED INFECTION [None]
  - SKIN ULCER [None]
